FAERS Safety Report 9118944 (Version 1)
Quarter: 2013Q1

REPORT INFORMATION
  Report Type: Spontaneous
  Country: US (occurrence: US)
  Receive Date: 20130226
  Receipt Date: 20130226
  Transmission Date: 20140127
  Serious: No
  Sender: FDA-Public Use
  Company Number: US-BIOGENIDEC-2013BI016123

PATIENT
  Age: 57 Year
  Sex: Male

DRUGS (2)
  1. TYSABRI [Suspect]
     Indication: MULTIPLE SCLEROSIS
     Route: 042
     Dates: start: 20121212
  2. AVONEX [Concomitant]
     Indication: MULTIPLE SCLEROSIS
     Route: 030
     Dates: start: 20060706

REACTIONS (4)
  - Muscular weakness [Not Recovered/Not Resolved]
  - Balance disorder [Not Recovered/Not Resolved]
  - Libido decreased [Not Recovered/Not Resolved]
  - Asthenia [Not Recovered/Not Resolved]
